FAERS Safety Report 4412236-4 (Version None)
Quarter: 2004Q3

REPORT INFORMATION
  Report Type: 
  Country: None (occurrence: None)
  Receive Date: 20040727
  Receipt Date: 20040719
  Transmission Date: 20050211
  Serious: Yes (Hospitalization, Other)
  Sender: FDA-Public Use
  Company Number: US-JNJFOC-20040503667

PATIENT
  Age: 68 Year
  Sex: Female
  Weight: 68.2664 kg

DRUGS (14)
  1. NATRECOR [Suspect]
     Indication: CARDIAC FAILURE CONGESTIVE
     Dosage: 6.9 + 23 ML, INTRAVENOUS
     Route: 042
     Dates: start: 20040514, end: 20040514
  2. NATRECOR [Suspect]
     Indication: CARDIAC FAILURE CONGESTIVE
     Dosage: 6.9 + 23 ML, INTRAVENOUS
     Route: 042
     Dates: start: 20040514, end: 20040516
  3. PHENERGAN [Concomitant]
  4. PLAVIX [Concomitant]
  5. VALIUM [Concomitant]
  6. SINEMET [Concomitant]
  7. LANTUS INSULIN (INSULIN GLARGINE) [Concomitant]
  8. LIPITOR [Concomitant]
  9. ASPIRIN [Concomitant]
  10. LASIX [Concomitant]
  11. NITROGLYCERIN [Concomitant]
  12. ELAVIL [Concomitant]
  13. TOPROLOL (METOPROLOL SUCCINATE) [Concomitant]
  14. LOVENOX [Concomitant]

REACTIONS (7)
  - BLISTER [None]
  - COMPARTMENT SYNDROME [None]
  - INFUSION SITE REACTION [None]
  - INJECTION SITE EXTRAVASATION [None]
  - LIMB INJURY [None]
  - SKIN DISCOLOURATION [None]
  - SWELLING [None]
